FAERS Safety Report 8049592-4 (Version None)
Quarter: 2012Q1

REPORT INFORMATION
  Report Type: 
  Country: None (occurrence: None)
  Receive Date: 20120117
  Receipt Date: 20120106
  Transmission Date: 20120608
  Serious: Yes (Death, Life-Threatening, Hospitalization, Disabling)
  Sender: FDA-Public Use
  Company Number: US-ROCHE-1029010

PATIENT
  Sex: Female
  Weight: 63.5 kg

DRUGS (13)
  1. PEMETREXED DISODIUM [Suspect]
     Indication: NON-SMALL CELL LUNG CANCER
     Route: 042
     Dates: start: 20110801, end: 20110919
  2. ASPIRIN [Concomitant]
     Dates: start: 20081221
  3. FAMOTIDINE [Concomitant]
     Dates: start: 20110614
  4. ZOLPIDEM [Concomitant]
  5. AVASTIN [Suspect]
     Indication: NON-SMALL CELL LUNG CANCER
     Route: 042
     Dates: start: 20110801, end: 20110919
  6. NORVASC [Concomitant]
     Dates: start: 20071221
  7. XANAX [Concomitant]
  8. EMEND [Concomitant]
  9. ALOXI [Concomitant]
     Dates: start: 20110801
  10. CARBOPLATIN [Suspect]
     Indication: NON-SMALL CELL LUNG CANCER
     Dosage: 6 AUC
     Route: 042
     Dates: start: 20110801, end: 20110919
  11. HYZAAR [Concomitant]
     Dates: start: 20071221
  12. FOLIC ACID [Concomitant]
     Dates: start: 20110621
  13. VITAMIN B-12 [Concomitant]
     Dates: start: 20110721

REACTIONS (5)
  - HYPOKALAEMIA [None]
  - TRACHEO-OESOPHAGEAL FISTULA [None]
  - PNEUMONIA ASPIRATION [None]
  - HYPOPHOSPHATAEMIA [None]
  - DEATH [None]
